FAERS Safety Report 5273250-2 (Version None)
Quarter: 2007Q1

REPORT INFORMATION
  Report Type: 
  Country: None (occurrence: None)
  Receive Date: 20070319
  Receipt Date: 20070301
  Transmission Date: 20070707
  Serious: Yes (Life-Threatening, Hospitalization)
  Sender: FDA-Public Use
  Company Number: 235584

PATIENT
  Age: 61 Year
  Sex: Male
  Weight: 113.4 kg

DRUGS (14)
  1. AVASTIN [Suspect]
     Indication: COLON CANCER
     Dosage: 852 MG, BID, ORAL
     Route: 048
     Dates: start: 20060926, end: 20061015
  2. CAPECITABINE (CAPECITABINE) [Suspect]
     Indication: COLON CANCER
     Dosage: 2330 MG, BID, ORAL
     Route: 048
     Dates: start: 20060926, end: 20061015
  3. HYDROCHLOROTHIAZIDE [Concomitant]
  4. ASPIRIN [Concomitant]
  5. OXALIPLATIN [Suspect]
     Indication: COLON CANCER
     Dosage: 299 MG, Q3W, INTRAVENOUS
     Route: 042
     Dates: start: 20060926, end: 20061015
  6. NITROGLYCERIN [Concomitant]
  7. TENORMIN [Concomitant]
  8. VASOTEC [Concomitant]
  9. TRICOR [Concomitant]
  10. GLIPIZIDE [Concomitant]
  11. AVANDIA (RISOGLITAZONE MALEATE) [Concomitant]
  12. METFORMIN HCL [Concomitant]
  13. FLONASE [Concomitant]
  14. OMEGA-3 POLYUNSATURATED FATTY ACIDS (DOCSAHEXAENOIC ACID, EICOSAPENTAE [Concomitant]

REACTIONS (10)
  - CATHETER RELATED INFECTION [None]
  - DEHYDRATION [None]
  - DIABETIC KETOACIDOSIS [None]
  - IMPAIRED HEALING [None]
  - MALIGNANT PLEURAL EFFUSION [None]
  - NAUSEA [None]
  - PURULENCE [None]
  - RENAL FAILURE ACUTE [None]
  - STAPHYLOCOCCAL SEPSIS [None]
  - VOMITING [None]
